FAERS Safety Report 8166510-9 (Version None)
Quarter: 2012Q1

REPORT INFORMATION
  Report Type: 
  Country: None (occurrence: None)
  Receive Date: 20120227
  Receipt Date: 20111005
  Transmission Date: 20120608
  Serious: No
  Sender: FDA-Public Use
  Company Number: US-MYLANLABS-2011S1020835

PATIENT
  Age: 13 Year
  Sex: Male

DRUGS (2)
  1. CLARITIN /00917501/ [Concomitant]
     Indication: SEASONAL ALLERGY
  2. AMNESTEEM [Suspect]
     Indication: ACNE CYSTIC
     Route: 048
     Dates: start: 20110502, end: 20110101

REACTIONS (3)
  - ARTHRALGIA [None]
  - EPISTAXIS [None]
  - HEADACHE [None]
